FAERS Safety Report 17743900 (Version 2)
Quarter: 2020Q2

REPORT INFORMATION
  Report Type: Spontaneous
  Country: US (occurrence: US)
  Receive Date: 20200505
  Receipt Date: 20200615
  Transmission Date: 20200714
  Serious: No
  Sender: FDA-Public Use
  Company Number: US-SHIRE-US202015182

PATIENT
  Sex: Female

DRUGS (2)
  1. GATTEX [Suspect]
     Active Substance: TEDUGLUTIDE\WATER
     Dosage: DOSE 0.205 (UNIT UNKNOWN), 1X/DAY:QD
     Route: 058
     Dates: start: 20200120
  2. GATTEX [Suspect]
     Active Substance: TEDUGLUTIDE\WATER
     Indication: PRODUCT USED FOR UNKNOWN INDICATION
     Dosage: DOSE 0.205 (UNIT UNKNOWN), 1X/DAY:QD
     Route: 058
     Dates: start: 20200130

REACTIONS (1)
  - Swelling [Recovering/Resolving]
